FAERS Safety Report 12153865 (Version 4)
Quarter: 2016Q2

REPORT INFORMATION
  Report Type: Spontaneous
  Country: US (occurrence: US)
  Receive Date: 20160307
  Receipt Date: 20160531
  Transmission Date: 20160815
  Serious: Yes (Hospitalization, Other)
  Sender: FDA-Public Use
  Company Number: US-009507513-1603USA002046

PATIENT
  Age: 65 Year
  Sex: Male
  Weight: 85.71 kg

DRUGS (6)
  1. LISINOPRIL. [Suspect]
     Active Substance: LISINOPRIL
     Indication: PRODUCT USED FOR UNKNOWN INDICATION
     Dosage: 5 MG, UNK
     Route: 065
     Dates: start: 20110717
  2. LISINOPRIL. [Suspect]
     Active Substance: LISINOPRIL
     Indication: PRODUCT USED FOR UNKNOWN INDICATION
     Dosage: 10 MG, UNK
     Route: 065
     Dates: start: 20140530
  3. PRINIVIL [Suspect]
     Active Substance: LISINOPRIL
     Indication: BLOOD PRESSURE INCREASED
     Dosage: UNK, UNKNOWN
     Route: 065
  4. HYDROCHLOROTHIAZIDE AND LISINOPRIL [Suspect]
     Active Substance: HYDROCHLOROTHIAZIDE\LISINOPRIL
     Indication: PRODUCT USED FOR UNKNOWN INDICATION
     Dosage: 12.5/10 MG
     Route: 065
     Dates: start: 20080520
  5. LISINOPRIL. [Suspect]
     Active Substance: LISINOPRIL
     Dosage: 20 MG, UNK
     Route: 065
     Dates: start: 20120309
  6. LISINOPRIL. [Suspect]
     Active Substance: LISINOPRIL
     Dosage: 10 MG, UNK
     Route: 065
     Dates: start: 20130425

REACTIONS (27)
  - Arteriosclerosis coronary artery [Unknown]
  - Lung adenocarcinoma [Unknown]
  - Intervertebral disc disorder [Recovering/Resolving]
  - Acute sinusitis [Unknown]
  - Major depression [Unknown]
  - Vascular stent restenosis [Unknown]
  - Arthralgia [Recovered/Resolved]
  - Cough [Recovered/Resolved]
  - Vertebral foraminal stenosis [Unknown]
  - Sinusitis [Unknown]
  - Thyroid function test abnormal [Unknown]
  - Drug administration error [Unknown]
  - Myofascial pain syndrome [Unknown]
  - Libido decreased [Unknown]
  - Penile size reduced [Not Recovered/Not Resolved]
  - Dyspepsia [Unknown]
  - Drug hypersensitivity [Unknown]
  - Blood glucose increased [Unknown]
  - Osteoarthritis [Unknown]
  - Cervical radiculopathy [Recovering/Resolving]
  - Erectile dysfunction [Not Recovered/Not Resolved]
  - Carpal tunnel syndrome [Unknown]
  - Costochondritis [Unknown]
  - Sleep apnoea syndrome [Recovering/Resolving]
  - Erectile dysfunction [Unknown]
  - Benign prostatic hyperplasia [Unknown]
  - Bronchitis [Unknown]

NARRATIVE: CASE EVENT DATE: 2008
